FAERS Safety Report 15011848 (Version 2)
Quarter: 2018Q2

REPORT INFORMATION
  Report Type: Spontaneous
  Country: CN (occurrence: CN)
  Receive Date: 20180614
  Receipt Date: 20180627
  Transmission Date: 20180711
  Serious: Yes (Congenital Anomaly, Other)
  Sender: FDA-Public Use
  Company Number: CN-GILEAD-2018-0343689

PATIENT

DRUGS (1)
  1. VIREAD [Suspect]
     Active Substance: TENOFOVIR DISOPROXIL FUMARATE
     Indication: HEPATITIS B
     Dosage: UNK
     Route: 050

REACTIONS (2)
  - Paternal exposure timing unspecified [Recovered/Resolved]
  - Cleft palate [Unknown]
